FAERS Safety Report 11078041 (Version 1)
Quarter: 2015Q2

REPORT INFORMATION
  Report Type: Spontaneous
  Country: GB (occurrence: None)
  Receive Date: 20150429
  Receipt Date: 20150429
  Transmission Date: 20150821
  Serious: No
  Sender: FDA-Public Use
  Company Number: None

PATIENT
  Age: 37 Year
  Sex: Female
  Weight: 60 kg

DRUGS (2)
  1. MIRVASO [Suspect]
     Active Substance: BRIMONIDINE TARTRATE
     Indication: ROSACEA
     Route: 061
     Dates: start: 20150427, end: 20150428
  2. BRENDA DOXYCYCLINE [Concomitant]

REACTIONS (2)
  - Flushing [None]
  - Application site reaction [None]

NARRATIVE: CASE EVENT DATE: 20150428
